FAERS Safety Report 9937020 (Version 1)
Quarter: 2014Q1

REPORT INFORMATION
  Report Type: Spontaneous
  Country: US (occurrence: None)
  Receive Date: 20140122
  Receipt Date: 20140122
  Transmission Date: 20141002
  Serious: No
  Sender: FDA-Public Use
  Company Number: AP356-00241-SPO-US

PATIENT
  Age: 53 Year
  Sex: Female
  Weight: 100 kg

DRUGS (3)
  1. BELVIQ (LORCASERIN HYDROCHLORIDE) [Suspect]
     Indication: WEIGHT CONTROL
     Dosage: 20 MG, AM AND PM, ORAL
     Dates: start: 20131023
  2. LOSARTAN (LOSARTAN) [Concomitant]
  3. BLOOD PRESSURE MEDICATION (ANTIHYPERTENSIVES) [Concomitant]

REACTIONS (2)
  - Weight increased [None]
  - Drug ineffective [None]
